FAERS Safety Report 8488690-8 (Version None)
Quarter: 2012Q2

REPORT INFORMATION
  Report Type: 
  Country: None (occurrence: None)
  Receive Date: 20120626
  Receipt Date: 20120604
  Transmission Date: 20120825
  Serious: Yes (Other)
  Sender: FDA-Public Use
  Company Number: JP-2012-15295

PATIENT
  Age: 83 Year
  Sex: Male

DRUGS (9)
  1. SELARA (EPLERENONE) TABLET ONGOING [Concomitant]
  2. PIMOBENDAN (PIMOBENDAN) TABLET ONGOING [Concomitant]
  3. CASODEX (BICALUTAMIDE) TABLET ONGOING [Concomitant]
  4. URINORM (BENZBROMARONE) TABLET ONGOING [Concomitant]
  5. LASIX (FUROSEMIDE) TABLET ONGOING [Concomitant]
  6. SAMSCA [Suspect]
     Indication: CARDIAC FAILURE CONGESTIVE
     Dosage: 15 MG MILLIGRAM(S), QD, ORAL
     Route: 048
     Dates: start: 20120503, end: 20120511
  7. ZYLORIC (ALLOPURINOL) TABLET ONGOING [Concomitant]
  8. SIGMART (NICORANDIL) TABLET ONGOING [Concomitant]
  9. ANCARON (AMIODARONE HYDROCHLORIDE) TABLET ONGOING [Concomitant]

REACTIONS (1)
  - BLOOD CREATINE PHOSPHOKINASE INCREASED [None]
